FAERS Safety Report 6542363-7 (Version None)
Quarter: 2010Q1

REPORT INFORMATION
  Report Type: 
  Country: None (occurrence: None)
  Receive Date: 20100119
  Receipt Date: 20100111
  Transmission Date: 20100710
  Serious: Yes (Hospitalization)
  Sender: FDA-Public Use
  Company Number: GXKR2010GB00646

PATIENT
  Age: 67 Year
  Sex: Male

DRUGS (6)
  1. TEMAZEPAM (NGX) [Suspect]
     Indication: INSOMNIA
     Dosage: 10 MG, UNK
     Route: 048
     Dates: start: 20071206, end: 20071207
  2. EFFEXOR XR [Suspect]
     Indication: DEPRESSION
     Dosage: 75 MG, UNK
     Route: 048
     Dates: start: 20071206, end: 20071207
  3. ACETYLSALICYLIC ACID [Concomitant]
     Dosage: 75 MG, QD
     Route: 065
     Dates: start: 20050101
  4. PERINDOPRIL [Concomitant]
     Dosage: 5.25 MG, QD
     Route: 065
     Dates: start: 20050101
  5. FLUOXETINE [Concomitant]
     Dosage: 20 MG, QD
     Route: 065
     Dates: start: 20071123, end: 20071128
  6. SIMVASTATIN [Concomitant]
     Dosage: 40 MG, QD
     Route: 065
     Dates: start: 20050101

REACTIONS (2)
  - LOSS OF CONSCIOUSNESS [None]
  - SOMNOLENCE [None]
